FAERS Safety Report 24265252 (Version 4)
Quarter: 2024Q4

REPORT INFORMATION
  Report Type: Report from Study
  Country: PL (occurrence: PL)
  Receive Date: 20240829
  Receipt Date: 20241010
  Transmission Date: 20250115
  Serious: Yes (Death, Hospitalization)
  Sender: PFIZER
  Company Number: PL-PFIZER INC-PV202300192346

PATIENT
  Age: 86 Year
  Sex: Female
  Weight: 57 kg

DRUGS (16)
  1. VYNDAQEL [Suspect]
     Active Substance: TAFAMIDIS MEGLUMINE
     Indication: Cardiac amyloidosis
     Dosage: 61 MG, 1X/DAY
     Route: 048
     Dates: start: 20231113, end: 20240825
  2. EUTHYROX [Concomitant]
     Active Substance: LEVOTHYROXINE SODIUM
     Dosage: 112 UG, 1X/DAY, 1-0-0
  3. ELIQUIS [Concomitant]
     Active Substance: APIXABAN
     Dosage: 2.5 UG, 2X/DAY, 1-0-1
  4. DOXYCYCLINUM [DOXYCYCLINE] [Concomitant]
     Dosage: 100 MG, 2X/DAY, 1-0-1
  5. URSODOXICOLTAURINE [Concomitant]
     Active Substance: URSODOXICOLTAURINE
     Dosage: 250 MG, 3X/DAY
  6. EFFECTIN [BITOLTEROL MESILATE] [Concomitant]
     Dosage: 37.5 MG, 1X/DAY, 1-0-0
  7. ATORVASTATIN CALCIUM [Concomitant]
     Active Substance: ATORVASTATIN CALCIUM
     Dosage: 20 MG, 1X/DAY, 0-0-1
  8. POTASSIUM CHLORIDE [Concomitant]
     Active Substance: POTASSIUM CHLORIDE
     Dosage: UNK, 3X/DAY, 2-3-2
  9. TELMISARTAN [Concomitant]
     Active Substance: TELMISARTAN
     Dosage: 40 MG, 2X/DAY, 1-0-1
  10. AMIODARONE HYDROCHLORIDE [Concomitant]
     Active Substance: AMIODARONE HYDROCHLORIDE
     Dosage: 200 MG, 1X/DAY, 1-0-0
  11. OZZION [Concomitant]
     Dosage: 20 MG, 1X/DAY, 0-0-1
  12. MAGNESIUM CHLORIDE [Concomitant]
     Active Substance: MAGNESIUM CHLORIDE
     Dosage: UNK, 2X/DAY, 1-0-1
  13. GLYCOPYRRONIUM\INDACATEROL [Concomitant]
     Active Substance: GLYCOPYRRONIUM\INDACATEROL
     Dosage: 85/43 INH. 1-0-0, 2X/DAY
  14. TORSEMIDE [Concomitant]
     Active Substance: TORSEMIDE
     Dosage: 20-30-30  MG, 3X/DAY
  15. CALCIUM CARBONATE [Concomitant]
     Active Substance: CALCIUM CARBONATE
     Dosage: 1 G, 3X/DAY
  16. VITAMIN D3 [Concomitant]
     Active Substance: CHOLECALCIFEROL
     Dosage: 4000 IU, 1X/DAY.1-0-0

REACTIONS (8)
  - Death [Fatal]
  - Atrial flutter [Recovered/Resolved]
  - Escherichia urinary tract infection [Recovered/Resolved]
  - Proteus infection [Recovered/Resolved]
  - General physical health deterioration [Unknown]
  - Asthenia [Unknown]
  - Memory impairment [Unknown]
  - Gait disturbance [Unknown]

NARRATIVE: CASE EVENT DATE: 20231118
